FAERS Safety Report 4326247-0 (Version None)
Quarter: 2004Q1

REPORT INFORMATION
  Report Type: 
  Country: None (occurrence: None)
  Receive Date: 20040329
  Receipt Date: 20030130
  Transmission Date: 20041129
  Serious: Yes (Other)
  Sender: FDA-Public Use
  Company Number: US-MERCK-0302USA00002

PATIENT
  Age: 73 Year
  Sex: Female
  Weight: 75 kg

DRUGS (8)
  1. VIOXX [Suspect]
     Indication: ARTHRALGIA
     Route: 048
     Dates: start: 20000201, end: 20021001
  2. VIOXX [Suspect]
     Indication: INFLAMMATION
     Route: 048
     Dates: start: 20000201, end: 20021001
  3. ULTRAM [Concomitant]
     Route: 065
     Dates: start: 20000601
  4. PREMARIN [Concomitant]
     Indication: PROPHYLAXIS
     Route: 065
     Dates: start: 19610101, end: 20020101
  5. LASIX [Concomitant]
     Indication: OEDEMA PERIPHERAL
     Route: 065
     Dates: start: 20000501, end: 20010501
  6. PLAQUENIL [Concomitant]
     Indication: ARTHRALGIA
     Route: 065
     Dates: start: 20001101
  7. PLAQUENIL [Concomitant]
     Indication: INFLAMMATION
     Route: 065
     Dates: start: 20001101
  8. ACCUPRIL [Concomitant]
     Indication: HYPERTENSION
     Route: 065
     Dates: start: 20000329, end: 20010914

REACTIONS (6)
  - DEEP VEIN THROMBOSIS [None]
  - DIABETES MELLITUS [None]
  - DYSPNOEA [None]
  - HYPERTENSION [None]
  - OEDEMA PERIPHERAL [None]
  - PHLEBITIS [None]
